FAERS Safety Report 5464649-X (Version None)
Quarter: 2007Q3

REPORT INFORMATION
  Report Type: 
  Country: None (occurrence: None)
  Receive Date: 20070921
  Receipt Date: 20070917
  Transmission Date: 20080115
  Serious: Yes (Hospitalization)
  Sender: FDA-Public Use
  Company Number: IT-MERCK-0709ITA00019

PATIENT
  Age: 41 Year
  Sex: Male

DRUGS (6)
  1. PRIMAXIN [Suspect]
     Indication: INFECTION PROPHYLAXIS
     Route: 051
     Dates: start: 20020401
  2. PRIMAXIN [Suspect]
     Indication: ANTIBIOTIC PROPHYLAXIS
     Route: 051
     Dates: start: 20020401
  3. TEICOPLANIN [Suspect]
     Route: 065
     Dates: start: 20020401
  4. CLINDAMYCIN [Concomitant]
     Indication: BACTERIAL INFECTION
     Route: 065
     Dates: start: 20020401
  5. LEVOFLOXACIN [Suspect]
     Indication: BACTERIAL INFECTION
     Route: 065
     Dates: start: 20020401
  6. AMPHOTERICIN B [Suspect]
     Indication: BACTERIAL INFECTION
     Route: 065
     Dates: start: 20020422

REACTIONS (5)
  - BACTERIAL INFECTION [None]
  - CREATININE RENAL CLEARANCE INCREASED [None]
  - DRUG INEFFECTIVE [None]
  - FUNGAL INFECTION [None]
  - OSTEOMYELITIS CHRONIC [None]
